FAERS Safety Report 5002855-9 (Version None)
Quarter: 2006Q2

REPORT INFORMATION
  Report Type: 
  Country: None (occurrence: None)
  Receive Date: 20060516
  Receipt Date: 20060508
  Transmission Date: 20061013
  Serious: Yes (Hospitalization)
  Sender: FDA-Public Use
  Company Number: 2006AP02135

PATIENT
  Sex: Female

DRUGS (5)
  1. IRESSA [Suspect]
     Indication: LUNG ADENOCARCINOMA
     Route: 048
     Dates: start: 20060427, end: 20060507
  2. GLYCERIN [Concomitant]
     Indication: CONSTIPATION
     Route: 054
     Dates: start: 20060506, end: 20060506
  3. TAKEPRON [Concomitant]
     Route: 048
     Dates: end: 20060507
  4. LASIX [Concomitant]
     Route: 048
     Dates: end: 20060507
  5. ALDACTONE [Concomitant]
     Route: 048
     Dates: end: 20060507

REACTIONS (1)
  - SUBILEUS [None]
